FAERS Safety Report 7525241-6 (Version None)
Quarter: 2011Q2

REPORT INFORMATION
  Report Type: 
  Country: None (occurrence: None)
  Receive Date: 20110606
  Receipt Date: 20110531
  Transmission Date: 20111010
  Serious: Yes (Hospitalization)
  Sender: FDA-Public Use
  Company Number: US-AMGEN-USASP2011028473

PATIENT
  Age: 85 Year
  Sex: Female

DRUGS (3)
  1. ARIMIDEX [Concomitant]
     Dosage: UNK
  2. EPOGEN [Suspect]
     Indication: RENAL FAILURE CHRONIC
     Dosage: 12100 IU, UNK
  3. ARANESP [Suspect]
     Indication: RENAL FAILURE CHRONIC
     Dosage: UNK

REACTIONS (2)
  - RECTAL HAEMORRHAGE [None]
  - HOSPITALISATION [None]
